FAERS Safety Report 16636723 (Version 3)
Quarter: 2019Q3

REPORT INFORMATION
  Report Type: Spontaneous
  Country: IL (occurrence: IL)
  Receive Date: 20190726
  Receipt Date: 20190816
  Transmission Date: 20191004
  Serious: Yes (Hospitalization, Other)
  Sender: FDA-Public Use
  Company Number: IL-SA-2019SA202017

PATIENT
  Age: 69 Year
  Sex: Male

DRUGS (5)
  1. PRALUENT [Suspect]
     Active Substance: ALIROCUMAB
     Indication: HYPERLIPIDAEMIA
     Dosage: UNK
  2. OSMO-ADALAT [Concomitant]
     Active Substance: NIFEDIPINE
     Dosage: 30 MG, BID
     Route: 048
  3. CARDILOC [Concomitant]
     Active Substance: BISOPROLOL FUMARATE
     Dosage: 5 MG, QD
     Route: 048
  4. XATRAL [ALFUZOSIN] [Concomitant]
     Dosage: 10 MG, QD
     Route: 048
  5. CARDILOC [Concomitant]
     Active Substance: BISOPROLOL FUMARATE
     Dosage: 2.5 MG, QD
     Route: 048

REACTIONS (9)
  - Hypergammaglobulinaemia benign monoclonal [Unknown]
  - Blood creatinine increased [Recovering/Resolving]
  - Chest pain [Unknown]
  - Renal cell carcinoma [Unknown]
  - Cholecystectomy [Unknown]
  - Light chain analysis increased [Unknown]
  - Acute kidney injury [Unknown]
  - Tubulointerstitial nephritis [Unknown]
  - Chest discomfort [Recovered/Resolved]

NARRATIVE: CASE EVENT DATE: 201803
